FAERS Safety Report 21166351 (Version 1)
Quarter: 2022Q3

REPORT INFORMATION
  Report Type: Spontaneous
  Country: US (occurrence: None)
  Receive Date: 20220802
  Receipt Date: 20220802
  Transmission Date: 20221027
  Serious: Yes (Other)
  Sender: FDA-Public Use
  Company Number: None

PATIENT
  Age: 60 Year
  Sex: Female
  Weight: 67.5 kg

DRUGS (11)
  1. MAGNESIUM CITRATE [Suspect]
     Active Substance: MAGNESIUM CITRATE
     Indication: Irritable bowel syndrome
     Dosage: OTHER FREQUENCY : ONCE;?
     Route: 048
     Dates: start: 20220614, end: 20220614
  2. MAGNESIUM CITRATE [Suspect]
     Active Substance: MAGNESIUM CITRATE
     Indication: Constipation
  3. SYNTHROID [Concomitant]
     Active Substance: LEVOTHYROXINE SODIUM
  4. FENTANYL TRANSDERMAL SYSTEM [Concomitant]
     Active Substance: FENTANYL
  5. FLEXERIL [Concomitant]
     Active Substance: CYCLOBENZAPRINE HYDROCHLORIDE
  6. NORTRIPTYLINE [Concomitant]
     Active Substance: NORTRIPTYLINE
  7. COENZYME Q10 [Concomitant]
     Active Substance: DIETARY SUPPLEMENT\UBIDECARENONE
  8. VITAMIN B [Concomitant]
     Active Substance: VITAMIN B
  9. VITAMIN D NOS [Concomitant]
     Active Substance: VITAMIN D NOS
  10. CALCIUM [Concomitant]
     Active Substance: CALCIUM
  11. PROBIOTICS NOS [Concomitant]
     Active Substance: PROBIOTICS NOS

REACTIONS (3)
  - Vomiting [None]
  - Retching [None]
  - Abdominal pain [None]

NARRATIVE: CASE EVENT DATE: 20220614
